FAERS Safety Report 20435280 (Version 1)
Quarter: 2022Q1

REPORT INFORMATION
  Report Type: Spontaneous
  Country: US (occurrence: US)
  Receive Date: 20220206
  Receipt Date: 20220206
  Transmission Date: 20220424
  Serious: No
  Sender: FDA-Public Use
  Company Number: US-ELI_LILLY_AND_COMPANY-US202202001368

PATIENT
  Sex: Female

DRUGS (2)
  1. TRULICITY [Suspect]
     Active Substance: DULAGLUTIDE
     Indication: Product used for unknown indication
     Dosage: 0.75 MG, UNKNOWN
     Route: 065
  2. METFORMIN [Concomitant]
     Active Substance: METFORMIN HYDROCHLORIDE
     Indication: Type 2 diabetes mellitus
     Dosage: 500 MG, UNKNOWN
     Route: 065

REACTIONS (16)
  - Chest pain [Unknown]
  - Balance disorder [Unknown]
  - Initial insomnia [Unknown]
  - Anxiety [Unknown]
  - Stress [Unknown]
  - Euphoric mood [Unknown]
  - Injection site pain [Unknown]
  - Headache [Unknown]
  - Hiccups [Unknown]
  - Nausea [Unknown]
  - Eructation [Unknown]
  - Lethargy [Unknown]
  - Dyspepsia [Unknown]
  - Diarrhoea [Unknown]
  - Abdominal discomfort [Unknown]
  - Flatulence [Unknown]
